FAERS Safety Report 5154515-1 (Version None)
Quarter: 2006Q4

REPORT INFORMATION
  Report Type: 
  Country: None (occurrence: None)
  Receive Date: 20061114
  Receipt Date: 20061102
  Transmission Date: 20070319
  Serious: Yes (Other)
  Sender: FDA-Public Use
  Company Number: 2006126357

PATIENT
  Age: 45 Year
  Sex: Male
  Weight: 105.7 kg

DRUGS (4)
  1. LIPITOR [Suspect]
     Indication: HYPERLIPIDAEMIA
     Dosage: 10 MG (10 MG, 1 IN 1 D) ORAL
     Route: 048
     Dates: end: 20061005
  2. AMLODIPINE [Concomitant]
  3. CANDESARTAN               (CANDESARTAN) [Concomitant]
  4. KETOCONAZOLE [Concomitant]

REACTIONS (3)
  - BLOOD CREATINE PHOSPHOKINASE INCREASED [None]
  - BLOOD DISORDER [None]
  - MUSCULOSKELETAL DISORDER [None]
